FAERS Safety Report 22661909 (Version 1)
Quarter: 2023Q2

REPORT INFORMATION
  Report Type: Other
  Country: None (occurrence: FR)
  Receive Date: 20230630
  Receipt Date: 20230630
  Transmission Date: 20230721
  Serious: Yes (Death, Other)
  Sender: FDA-Public Use
  Company Number: PT-AUROBINDO-AUR-APL-2023-041497

PATIENT
  Age: 79 Year
  Sex: Female

DRUGS (3)
  1. OXYGEN [Suspect]
     Active Substance: OXYGEN
     Indication: Hypersensitivity pneumonitis
     Route: 055
  2. PREDNISOLONE [Suspect]
     Active Substance: PREDNISOLONE
     Route: 050
  3. MYCOPHENOLATE MOFETIL [Suspect]
     Active Substance: MYCOPHENOLATE MOFETIL
     Route: 050

REACTIONS (1)
  - Meningitis cryptococcal [Fatal]
